FAERS Safety Report 25722638 (Version 3)
Quarter: 2025Q4

REPORT INFORMATION
  Report Type: Spontaneous
  Country: JP (occurrence: JP)
  Receive Date: 20250825
  Receipt Date: 20251216
  Transmission Date: 20260118
  Serious: Yes (Hospitalization, Other)
  Sender: ARGENX BVBA
  Company Number: JP-ARGENX-2025-ARGX-JP010954

PATIENT

DRUGS (1)
  1. EFGARTIGIMOD ALFA\HYALURONIDASE-QVFC [Suspect]
     Active Substance: EFGARTIGIMOD ALFA\HYALURONIDASE-QVFC
     Indication: Myasthenia gravis
     Dosage: 5.6 ML
     Route: 058
     Dates: start: 2024, end: 2025

REACTIONS (1)
  - Cryptococcosis [Not Recovered/Not Resolved]

NARRATIVE: CASE EVENT DATE: 20250701
